FAERS Safety Report 18667166 (Version 1)
Quarter: 2020Q4

REPORT INFORMATION
  Report Type: Report from Study
  Country: RU (occurrence: RU)
  Receive Date: 20201228
  Receipt Date: 20201228
  Transmission Date: 20210114
  Serious: Yes (Hospitalization)
  Sender: FDA-Public Use
  Company Number: RU-JNJFOC-20191124424

PATIENT
  Age: 60 Year
  Sex: Female
  Weight: 53.5 kg

DRUGS (13)
  1. BISOPROLOL [Concomitant]
     Active Substance: BISOPROLOL
     Indication: ESSENTIAL HYPERTENSION
     Route: 048
     Dates: start: 201811
  2. MELOXICAM. [Concomitant]
     Active Substance: MELOXICAM
     Indication: SYSTEMIC LUPUS ERYTHEMATOSUS
     Route: 048
     Dates: start: 201601, end: 20191024
  3. ALFACALCIDOL [Concomitant]
     Active Substance: ALFACALCIDOL
     Indication: OSTEOPOROSIS
     Route: 048
     Dates: start: 201701
  4. OMEPRAZOLE. [Concomitant]
     Active Substance: OMEPRAZOLE
     Indication: GASTROINTESTINAL DISORDER THERAPY
     Route: 048
     Dates: start: 201904
  5. HIZAAR [Concomitant]
     Active Substance: HYDROCHLOROTHIAZIDE\LOSARTAN POTASSIUM
     Indication: ESSENTIAL HYPERTENSION
     Dosage: 1 TABLET
     Route: 048
     Dates: start: 20150420
  6. USTEKINUMAB [Suspect]
     Active Substance: USTEKINUMAB
     Indication: SYSTEMIC LUPUS ERYTHEMATOSUS
     Route: 042
     Dates: start: 20190917
  7. ROSUVASTATIN. [Concomitant]
     Active Substance: ROSUVASTATIN
     Indication: DYSLIPIDAEMIA
     Route: 048
     Dates: start: 201807
  8. ATROVENT [Concomitant]
     Active Substance: IPRATROPIUM BROMIDE
     Indication: RESPIRATORY FAILURE
     Dates: start: 20191123
  9. METHYLPREDNISOLONE. [Concomitant]
     Active Substance: METHYLPREDNISOLONE
     Indication: SYSTEMIC LUPUS ERYTHEMATOSUS
     Route: 048
     Dates: start: 20121109, end: 20191023
  10. COLECALCIFEROL [Concomitant]
     Active Substance: CHOLECALCIFEROL
     Indication: OSTEOPOROSIS
     Dosage: 20 DROPS
     Route: 048
     Dates: start: 201701
  11. HEPARIN [Concomitant]
     Active Substance: HEPARIN SODIUM
     Indication: THROMBOSIS PROPHYLAXIS
     Route: 042
     Dates: start: 20191101, end: 20191122
  12. PREDNISOLONE. [Concomitant]
     Active Substance: PREDNISOLONE
     Route: 048
     Dates: start: 20191123
  13. VEROSPIRON [Concomitant]
     Active Substance: SPIRONOLACTONE
     Indication: HYDROTHORAX
     Route: 048
     Dates: start: 20191101, end: 20191122

REACTIONS (1)
  - Pneumonia [Recovered/Resolved with Sequelae]

NARRATIVE: CASE EVENT DATE: 20191024
